FAERS Safety Report 18649513 (Version 4)
Quarter: 2021Q1

REPORT INFORMATION
  Report Type: Report from Study
  Country: US (occurrence: US)
  Receive Date: 20201222
  Receipt Date: 20210202
  Transmission Date: 20210419
  Serious: Yes (Other)
  Sender: FDA-Public Use
  Company Number: US-PFIZER INC-2020499154

PATIENT
  Age: 9 Year
  Sex: Male

DRUGS (1)
  1. ENBREL [Suspect]
     Active Substance: ETANERCEPT
     Indication: JUVENILE IDIOPATHIC ARTHRITIS
     Dosage: 25 MILLIGRAM, QWK
     Route: 065
     Dates: start: 202010

REACTIONS (5)
  - Hypersensitivity [Unknown]
  - Wrong technique in device usage process [Unknown]
  - Injection site pain [Unknown]
  - Needle issue [Unknown]
  - Injection site haemorrhage [Unknown]

NARRATIVE: CASE EVENT DATE: 2020
